FAERS Safety Report 8622026-4 (Version None)
Quarter: 2012Q3

REPORT INFORMATION
  Report Type: 
  Country: None (occurrence: None)
  Receive Date: 20120823
  Receipt Date: 20120823
  Transmission Date: 20120928
  Serious: No
  Sender: FDA-Public Use
  Company Number: None

PATIENT
  Age: 16 Year
  Sex: Female
  Weight: 43.0917 kg

DRUGS (4)
  1. LITHIUM CARBONATE [Concomitant]
  2. ABILIFY [Suspect]
     Indication: BIPOLAR II DISORDER
     Dosage: ORAL, QD
     Route: 048
     Dates: start: 20110908, end: 20111208
  3. PROZAC [Concomitant]
  4. KLONOPIN [Concomitant]

REACTIONS (2)
  - GAIT DISTURBANCE [None]
  - MUSCULOSKELETAL STIFFNESS [None]
